FAERS Safety Report 9606977 (Version 2)
Quarter: 2013Q4

REPORT INFORMATION
  Report Type: Report from Study
  Country: US (occurrence: US)
  Receive Date: 20131009
  Receipt Date: 20131011
  Transmission Date: 20140711
  Serious: Yes (Life-Threatening, Hospitalization)
  Sender: FDA-Public Use
  Company Number: US-ROCHE-1285877

PATIENT
  Age: 72 Year
  Sex: Female
  Weight: 63.56 kg

DRUGS (3)
  1. XELODA [Suspect]
     Indication: COLON CANCER
     Dosage: 4 DAYS OFF
     Route: 048
     Dates: start: 20130513
  2. AVASTIN [Suspect]
     Indication: COLON CANCER
     Route: 042
     Dates: start: 20130418, end: 20130822
  3. COUMADIN [Concomitant]

REACTIONS (2)
  - Pulmonary thrombosis [Not Recovered/Not Resolved]
  - Pulmonary embolism [Recovered/Resolved]
